FAERS Safety Report 6017108-X (Version None)
Quarter: 2008Q4

REPORT INFORMATION
  Report Type: 
  Country: None (occurrence: None)
  Receive Date: 20081223
  Receipt Date: 20081217
  Transmission Date: 20090506
  Serious: Yes (Other)
  Sender: FDA-Public Use
  Company Number: FR-WYE-G02806408

PATIENT
  Sex: Male
  Weight: 98 kg

DRUGS (1)
  1. EFFEXOR [Suspect]
     Indication: DEPRESSION
     Dosage: 300 MG TOTAL DAILY
     Route: 048

REACTIONS (9)
  - BUNDLE BRANCH BLOCK RIGHT [None]
  - CARDIAC VENTRICULOGRAM RIGHT ABNORMAL [None]
  - CARDIOMYOPATHY [None]
  - CHEST DISCOMFORT [None]
  - EXTRASYSTOLES [None]
  - LEFT VENTRICULAR END-DIASTOLIC PRESSURE INCREASED [None]
  - MALAISE [None]
  - VENTRICULAR HYPOKINESIA [None]
  - VERTIGO [None]
